FAERS Safety Report 9546481 (Version 2)
Quarter: 2013Q4

REPORT INFORMATION
  Report Type: Spontaneous
  Country: BR (occurrence: BR)
  Receive Date: 20130923
  Receipt Date: 20131217
  Transmission Date: 20140711
  Serious: No
  Sender: FDA-Public Use
  Company Number: PHHY2013BR105509

PATIENT
  Sex: Male

DRUGS (2)
  1. RITALINA [Suspect]
     Indication: DYSLEXIA
     Dosage: 1 DF, PER DAY
     Route: 048
     Dates: start: 201307
  2. RITALINA [Suspect]
     Indication: DISTURBANCE IN ATTENTION

REACTIONS (3)
  - Disturbance in attention [Recovering/Resolving]
  - Agitation [Recovering/Resolving]
  - Headache [Not Recovered/Not Resolved]
